FAERS Safety Report 5445991-5 (Version None)
Quarter: 2007Q3

REPORT INFORMATION
  Report Type: 
  Country: None (occurrence: None)
  Receive Date: 20070907
  Receipt Date: 20070829
  Transmission Date: 20080115
  Serious: Yes (Other)
  Sender: FDA-Public Use
  Company Number: US-JNJFOC-20070806343

PATIENT
  Sex: Female

DRUGS (4)
  1. MONISTAT 3 COMBINATION PACK [Suspect]
     Route: 067
  2. MONISTAT 3 COMBINATION PACK [Suspect]
     Indication: FUNGAL INFECTION
     Route: 067
  3. MONISTAT 3 COMBINATION PACK [Suspect]
     Route: 061
  4. MONISTAT 3 COMBINATION PACK [Suspect]
     Route: 061

REACTIONS (1)
  - VAGINAL HAEMORRHAGE [None]
